FAERS Safety Report 8012030-1 (Version None)
Quarter: 2011Q4

REPORT INFORMATION
  Report Type: 
  Country: None (occurrence: None)
  Receive Date: 20111228
  Receipt Date: 20111219
  Transmission Date: 20120403
  Serious: Yes (Hospitalization)
  Sender: FDA-Public Use
  Company Number: ES-GLAXOSMITHKLINE-B0770860A

PATIENT
  Sex: Female
  Weight: 54 kg

DRUGS (4)
  1. LEVOTHROID [Concomitant]
     Indication: THYROIDITIS
     Dosage: 75MG PER DAY
     Route: 048
     Dates: start: 19930101
  2. SIMVASTATIN [Concomitant]
     Indication: CARCINOID SYNDROME
     Dosage: 30MG WEEKLY
     Route: 048
     Dates: start: 20100101
  3. OMEPRAZOLE [Concomitant]
     Indication: PROPHYLAXIS
     Dosage: 20MG PER DAY
     Route: 048
     Dates: start: 20110101
  4. PAZOPANIB [Suspect]
     Indication: NEUROENDOCRINE TUMOUR
     Dosage: 800MG PER DAY
     Route: 048
     Dates: start: 20110223, end: 20110907

REACTIONS (1)
  - JAUNDICE CHOLESTATIC [None]
